FAERS Safety Report 4317121-4 (Version None)
Quarter: 2004Q1

REPORT INFORMATION
  Report Type: 
  Country: None (occurrence: None)
  Receive Date: 20040312
  Receipt Date: 20040126
  Transmission Date: 20041129
  Serious: Yes (Death, Hospitalization)
  Sender: FDA-Public Use
  Company Number: 202580

PATIENT
  Sex: Female
  Weight: 1 kg

DRUGS (3)
  1. HERCEPTIN [Suspect]
     Indication: BREAST CANCER METASTATIC
     Dosage: SEE IMAGE
     Route: 064
     Dates: start: 20020709
  2. HERCEPTIN [Suspect]
     Indication: BREAST CANCER METASTATIC
     Dosage: SEE IMAGE
     Route: 064
     Dates: start: 20030214
  3. VINORELBINE (VINORELBINE) [Suspect]
     Indication: BREAST CANCER METASTATIC
     Dosage: 25 MG/M2, 1/WEEK, TRANSPLACENTAL
     Route: 064
     Dates: start: 20020709, end: 20030123

REACTIONS (18)
  - BLOOD BILIRUBIN INCREASED [None]
  - CAESAREAN SECTION [None]
  - CEREBRAL HAEMORRHAGE [None]
  - CYANOSIS NEONATAL [None]
  - EMPHYSEMATOUS BULLA [None]
  - FLATULENCE [None]
  - HYPERGLYCAEMIA [None]
  - HYPOALBUMINAEMIA [None]
  - INTERLEUKIN LEVEL INCREASED [None]
  - MATERNAL DRUGS AFFECTING FOETUS [None]
  - MULTI-ORGAN FAILURE [None]
  - NEONATAL DISORDER [None]
  - NEONATAL RESPIRATORY DISTRESS SYNDROME [None]
  - OLIGOHYDRAMNIOS [None]
  - PLEURAL EFFUSION [None]
  - PNEUMOTHORAX [None]
  - PREMATURE BABY [None]
  - PREMATURE SEPARATION OF PLACENTA [None]
